FAERS Safety Report 5852860-5 (Version None)
Quarter: 2008Q3

REPORT INFORMATION
  Report Type: 
  Country: None (occurrence: None)
  Receive Date: 20080821
  Receipt Date: 20080811
  Transmission Date: 20090109
  Serious: Yes (Disabling)
  Sender: FDA-Public Use
  Company Number: GB-ASTRAZENECA-2008GB01535

PATIENT
  Age: 48 Year
  Sex: Female

DRUGS (3)
  1. SEROQUEL [Suspect]
     Indication: SCHIZOPHRENIA
     Dosage: 400 MG
     Route: 048
     Dates: start: 20080101
  2. SEROQUEL [Suspect]
     Dosage: 400 MG
     Route: 048
     Dates: start: 20080320
  3. EFFEXOR XR [Concomitant]
     Indication: DEPRESSION
     Dosage: 375 MG
     Route: 048
     Dates: start: 20060801

REACTIONS (3)
  - BACK PAIN [None]
  - MUSCULOSKELETAL PAIN [None]
  - MYALGIA [None]
